FAERS Safety Report 6310728-4 (Version None)
Quarter: 2009Q3

REPORT INFORMATION
  Report Type: 
  Country: None (occurrence: None)
  Receive Date: 20090811
  Receipt Date: 20090615
  Transmission Date: 20100115
  Serious: No
  Sender: FDA-Public Use
  Company Number: 1000006799

PATIENT
  Age: 59 Year
  Sex: Female

DRUGS (13)
  1. SAVELLA [Suspect]
     Indication: FIBROMYALGIA
     Dosage: 12.5 MG (12.5 MG, 1 IN 1 D), ORAL; 25 MG (12.5 MG, 2 IN1  D), ORAL
     Route: 048
     Dates: start: 20090612, end: 20090612
  2. SAVELLA [Suspect]
     Indication: FIBROMYALGIA
     Dosage: 12.5 MG (12.5 MG, 1 IN 1 D), ORAL; 25 MG (12.5 MG, 2 IN1  D), ORAL
     Route: 048
     Dates: start: 20090613
  3. OXYCONTIN (10 MILLIGRAM) [Concomitant]
  4. SOMA [Concomitant]
  5. ENDOCET (10 MILLIGRAM) [Concomitant]
  6. DIOVAN [Concomitant]
  7. ZANTAC [Concomitant]
  8. ALLEGRA D 24 HOUR [Concomitant]
  9. AMBIEN [Concomitant]
  10. FISH OIL [Concomitant]
  11. MULTI-VITAMINS [Concomitant]
  12. MAGNESIUM [Concomitant]
  13. XANAX [Concomitant]

REACTIONS (2)
  - HYPOAESTHESIA [None]
  - POOR PERIPHERAL CIRCULATION [None]
